FAERS Safety Report 7732294-9 (Version None)
Quarter: 2011Q3

REPORT INFORMATION
  Report Type: 
  Country: None (occurrence: None)
  Receive Date: 20110906
  Receipt Date: 20110826
  Transmission Date: 20111222
  Serious: No
  Sender: FDA-Public Use
  Company Number: US-AMGEN-USASP2011008179

PATIENT
  Age: 69 Year
  Sex: Female

DRUGS (11)
  1. ENBREL [Suspect]
     Indication: PRODUCT USED FOR UNKNOWN INDICATION
     Dosage: UNK
  2. METHOTREXATE [Concomitant]
  3. JANUVIA [Concomitant]
  4. ACIPHEX [Concomitant]
  5. VITAMIN D [Concomitant]
  6. ACTOS [Concomitant]
  7. ACTOS [Concomitant]
     Dosage: UNK MG, QD
  8. PROLIA [Suspect]
     Indication: OSTEOPOROSIS POSTMENOPAUSAL
     Dosage: 60 MG, Q6MO
     Dates: start: 20110210
  9. JANUVIA [Concomitant]
     Dosage: UNK MG, QD
  10. FOLIC ACID [Concomitant]
  11. CALCIUM CARBONATE [Concomitant]

REACTIONS (4)
  - BLOOD GLUCOSE INCREASED [None]
  - MALAISE [None]
  - GINGIVAL DISORDER [None]
  - ANXIETY [None]
